FAERS Safety Report 16417940 (Version 1)
Quarter: 2019Q2

REPORT INFORMATION
  Report Type: Spontaneous
  Country: US (occurrence: US)
  Receive Date: 20190611
  Receipt Date: 20190611
  Transmission Date: 20190711
  Serious: No
  Sender: FDA-Public Use
  Company Number: US-ACTELION-A-NJ2019-190839

PATIENT
  Age: 71 Year
  Sex: Male

DRUGS (1)
  1. OPSUMIT [Suspect]
     Active Substance: MACITENTAN
     Indication: STRONGYLOIDIASIS
     Dosage: 10 MG, QD
     Route: 048
     Dates: start: 20181218

REACTIONS (1)
  - Neck pain [Not Recovered/Not Resolved]

NARRATIVE: CASE EVENT DATE: 201905
